FAERS Safety Report 8986818 (Version 1)
Quarter: 2012Q4

REPORT INFORMATION
  Report Type: Spontaneous
  Country: US (occurrence: None)
  Receive Date: 20121116
  Receipt Date: 20121116
  Transmission Date: 20130627
  Serious: Yes (Hospitalization)
  Sender: FDA-Public Use
  Company Number: 141637

PATIENT
  Age: 24 Year

DRUGS (1)
  1. HALOPERIDOL LACTATE [Suspect]

REACTIONS (2)
  - Angioedema [None]
  - Rash erythematous [None]
